FAERS Safety Report 10088988 (Version 1)
Quarter: 2014Q2

REPORT INFORMATION
  Report Type: Spontaneous
  Country: JP (occurrence: JP)
  Receive Date: 20140421
  Receipt Date: 20140421
  Transmission Date: 20141212
  Serious: Yes (Hospitalization)
  Sender: FDA-Public Use
  Company Number: JP-UCBSA-118314

PATIENT
  Sex: Female

DRUGS (2)
  1. CIMZIA [Suspect]
     Dosage: 200 MG SYRINGE, UNSPECIFIED DOSE
     Route: 058
  2. CIMZIA [Suspect]
     Dosage: 200 MG SYRINGE
     Route: 058

REACTIONS (2)
  - Oedema [Unknown]
  - Deep vein thrombosis [Unknown]
